FAERS Safety Report 18511974 (Version 1)
Quarter: 2020Q4

REPORT INFORMATION
  Report Type: Spontaneous
  Country: None (occurrence: ES)
  Receive Date: 20201117
  Receipt Date: 20201117
  Transmission Date: 20210114
  Serious: Yes (Other)
  Sender: FDA-Public Use
  Company Number: ES-CADILA HEALTHCARE LIMITED-ES-ZYDUS-058144

PATIENT

DRUGS (3)
  1. AZITHROMYCIN ANHYDROUS. [Suspect]
     Active Substance: AZITHROMYCIN ANHYDROUS
     Indication: COVID-19
     Dosage: 500 MILLIGRAM
     Route: 065
  2. HYDROXYCHLOROQUINE [Suspect]
     Active Substance: HYDROXYCHLOROQUINE
     Indication: COVID-19
     Dosage: 200MG/12H (FIRST DAY DOSE CHARGE: 400MG/12H)
     Route: 065
  3. OMEPRAZOLE. [Concomitant]
     Active Substance: OMEPRAZOLE
     Indication: HIATUS HERNIA
     Dosage: 20MG/12H
     Route: 065

REACTIONS (7)
  - Cardiac failure chronic [Unknown]
  - Mitral valve incompetence [Unknown]
  - Product use in unapproved indication [Unknown]
  - Extrasystoles [Recovered/Resolved]
  - Dyspnoea exertional [Unknown]
  - Drug interaction [Unknown]
  - Tachycardia [Recovered/Resolved]
